FAERS Safety Report 7043896-X (Version None)
Quarter: 2010Q4

REPORT INFORMATION
  Report Type: 
  Country: None (occurrence: None)
  Receive Date: 20101012
  Receipt Date: 20101012
  Transmission Date: 20110411
  Serious: Yes (Hospitalization)
  Sender: FDA-Public Use
  Company Number: None

PATIENT
  Sex: Male
  Weight: 98.5 kg

DRUGS (2)
  1. BACTRIM DS [Suspect]
     Indication: CARPAL TUNNEL DECOMPRESSION
     Dosage: BID PO
     Route: 048
     Dates: start: 20100923, end: 20101003
  2. BACTRIM DS [Suspect]
     Indication: POSTOPERATIVE ABSCESS
     Dosage: BID PO
     Route: 048
     Dates: start: 20100923, end: 20101003

REACTIONS (1)
  - JAUNDICE [None]
